FAERS Safety Report 23584036 (Version 2)
Quarter: 2025Q1

REPORT INFORMATION
  Report Type: Spontaneous
  Country: CZ (occurrence: CZ)
  Receive Date: 20240301
  Receipt Date: 20250129
  Transmission Date: 20250409
  Serious: Yes (Death)
  Sender: BLUEPRINT MEDICINES
  Company Number: CZ-Blueprint Medicines Corporation-SP-CZ-2024-000423

PATIENT
  Sex: Female

DRUGS (2)
  1. AVAPRITINIB [Suspect]
     Active Substance: AVAPRITINIB
     Indication: Advanced systemic mastocytosis
     Route: 065
  2. AVAPRITINIB [Suspect]
     Active Substance: AVAPRITINIB
     Route: 065

REACTIONS (2)
  - Disease progression [Fatal]
  - Peripheral swelling [Not Recovered/Not Resolved]
